FAERS Safety Report 11250362 (Version 1)
Quarter: 2015Q3

REPORT INFORMATION
  Report Type: Spontaneous
  Country: US (occurrence: US)
  Receive Date: 20150708
  Receipt Date: 20150708
  Transmission Date: 20151125
  Serious: No
  Sender: FDA-Public Use
  Company Number: US-ELI_LILLY_AND_COMPANY-US200808006504

PATIENT
  Sex: Female

DRUGS (3)
  1. HUMULIN R [Suspect]
     Active Substance: INSULIN HUMAN
  2. LANTUS [Concomitant]
     Active Substance: INSULIN GLARGINE
  3. GLUCAGON. [Suspect]
     Active Substance: GLUCAGON
     Dosage: UNK, UNK
     Dates: start: 20080829, end: 20080829

REACTIONS (3)
  - Expired product administered [Unknown]
  - Blood glucose decreased [Recovered/Resolved]
  - Aggression [Recovered/Resolved]

NARRATIVE: CASE EVENT DATE: 20080829
